FAERS Safety Report 4996099-4 (Version None)
Quarter: 2006Q2

REPORT INFORMATION
  Report Type: 
  Country: None (occurrence: None)
  Receive Date: 20060508
  Receipt Date: 20060124
  Transmission Date: 20061013
  Serious: Yes (Hospitalization)
  Sender: FDA-Public Use
  Company Number: US-MERCK-0601USA02923

PATIENT
  Age: 53 Year
  Sex: Male
  Weight: 159 kg

DRUGS (54)
  1. VIOXX [Suspect]
     Indication: ARTHRITIS
     Route: 048
     Dates: start: 19990831, end: 20000126
  2. VIOXX [Suspect]
     Route: 048
     Dates: start: 20000126, end: 20000721
  3. ZOCOR [Concomitant]
     Indication: BLOOD TRIGLYCERIDES INCREASED
     Route: 048
  4. PRINIVIL [Concomitant]
     Route: 065
  5. TOPROL-XL [Concomitant]
     Route: 048
  6. HYDROCODONE BITARTRATE + ACETAMINOPHEN [Concomitant]
     Indication: PAIN
     Route: 048
  7. PRILOSEC [Concomitant]
     Route: 065
  8. PLAVIX [Concomitant]
     Route: 065
     Dates: start: 20000101, end: 20060101
  9. ASPIRIN [Concomitant]
     Indication: PROPHYLAXIS
     Route: 065
  10. ASPIRIN [Concomitant]
     Route: 065
  11. NITROGLYCERIN [Concomitant]
     Route: 065
  12. LORCET-HD [Concomitant]
     Indication: PAIN
     Route: 065
  13. ZESTRIL [Concomitant]
     Route: 048
  14. ASCORBIC ACID [Concomitant]
     Indication: CHEST PAIN
     Route: 065
  15. VITAMIN E [Concomitant]
     Route: 065
  16. ALBUTEROL [Concomitant]
     Route: 065
  17. BIAXIN [Concomitant]
     Route: 065
  18. DICLOFENAC [Concomitant]
     Route: 065
  19. PREDNISONE [Concomitant]
     Route: 065
  20. ZITHROMAX [Concomitant]
     Route: 065
  21. NAPROXEN [Concomitant]
     Indication: PAIN
     Route: 065
  22. CELEBREX [Concomitant]
     Route: 065
  23. ACETAMINOPHEN AND OXYCODONE HYDROCHLORIDE [Concomitant]
     Route: 065
  24. METHOCARBAMOL [Concomitant]
     Route: 065
  25. TYLENOL (CAPLET) [Concomitant]
     Route: 065
  26. INDOMETHACIN [Concomitant]
     Route: 065
  27. MORPHINE SULFATE [Concomitant]
     Route: 065
  28. [THERAPY UNSPECIFIED] [Concomitant]
     Indication: DEPRESSION
     Route: 065
  29. [THERAPY UNSPECIFIED] [Concomitant]
     Indication: ANXIETY
     Route: 065
  30. METFORMIN [Concomitant]
     Indication: DIABETES MELLITUS
     Route: 048
  31. CAPZASIN [Concomitant]
     Indication: BACK PAIN
     Route: 065
  32. CAPZASIN [Concomitant]
     Indication: SHOULDER PAIN
     Route: 065
  33. COLACE [Concomitant]
     Route: 065
  34. FLUNASE (FLUNISOLIDE) [Concomitant]
     Indication: SLEEP APNOEA SYNDROME
     Route: 065
  35. VANCENASE AQ NASAL SPRAY [Concomitant]
     Indication: SLEEP APNOEA SYNDROME
     Route: 065
  36. LASIX [Concomitant]
     Route: 065
  37. SPIRONOLACTONE [Concomitant]
     Route: 065
  38. HYDRODIURIL [Concomitant]
     Route: 048
  39. HEPARIN [Concomitant]
     Route: 065
  40. ACTIVASE [Concomitant]
     Route: 065
  41. DIPYRIDAMOLE [Concomitant]
     Route: 065
  42. PRAVACHOL [Concomitant]
     Indication: BLOOD TRIGLYCERIDES INCREASED
     Route: 065
  43. IBUPROFEN [Concomitant]
     Route: 065
  44. PROPOXYPHENE HYDROCHLORIDE [Concomitant]
     Route: 065
  45. TYLENOL W/ CODEINE NO. 3 [Concomitant]
     Route: 065
  46. TRAMADOL HYDROCHLORIDE [Concomitant]
     Route: 048
  47. TRIAMCINOLONE [Concomitant]
     Route: 065
  48. MAGNESIUM SULFATE [Concomitant]
     Route: 065
  49. WELLBUTRIN [Concomitant]
     Indication: DEPRESSION
     Route: 065
  50. WELLBUTRIN [Concomitant]
     Indication: ANXIETY
     Route: 065
  51. PROZAC [Concomitant]
     Indication: DEPRESSION
     Route: 065
  52. PROZAC [Concomitant]
     Indication: ANXIETY
     Route: 065
  53. XENICAL [Concomitant]
     Route: 065
  54. MERITIN [Concomitant]
     Route: 065

REACTIONS (29)
  - ANAEMIA [None]
  - ANGINA PECTORIS [None]
  - ANGINA UNSTABLE [None]
  - ANHEDONIA [None]
  - ANXIETY [None]
  - ASTHMA [None]
  - BLOOD TRIGLYCERIDES INCREASED [None]
  - CARDIAC FAILURE [None]
  - CARDIOVASCULAR DISORDER [None]
  - CEREBROVASCULAR ACCIDENT [None]
  - CHEST PAIN [None]
  - CHRONIC OBSTRUCTIVE PULMONARY DISEASE [None]
  - CORONARY ARTERY DISEASE [None]
  - DEPRESSION [None]
  - DIABETES MELLITUS [None]
  - EMOTIONAL DISTRESS [None]
  - HEPATOCELLULAR DAMAGE [None]
  - KNEE ARTHROPLASTY [None]
  - MIGRAINE [None]
  - MUMPS [None]
  - MUSCULOSKELETAL CHEST PAIN [None]
  - MYOCARDIAL INFARCTION [None]
  - PAIN [None]
  - PNEUMONIA [None]
  - RENAL DISORDER [None]
  - SKIN CANCER [None]
  - THROMBOSIS [None]
  - ULCER [None]
  - VARICOSE VEIN OPERATION [None]
